FAERS Safety Report 5073960-6 (Version None)
Quarter: 2006Q3

REPORT INFORMATION
  Report Type: 
  Country: None (occurrence: None)
  Receive Date: 20060808
  Receipt Date: 20060516
  Transmission Date: 20061208
  Serious: Yes (Hospitalization)
  Sender: FDA-Public Use
  Company Number: US-AMGEN-KDL180000

PATIENT
  Sex: Female
  Weight: 66.7 kg

DRUGS (7)
  1. PROCRIT [Suspect]
     Indication: ANAEMIA OF MALIGNANT DISEASE
     Dates: start: 20060323
  2. PROTONIX [Concomitant]
  3. CARAFATE [Concomitant]
  4. PROZAC [Concomitant]
  5. LORAZEPAM [Concomitant]
  6. VICODIN [Concomitant]
  7. DIGITEK [Concomitant]

REACTIONS (1)
  - PULMONARY EMBOLISM [None]
